FAERS Safety Report 9748222 (Version 1)
Quarter: 2013Q4

REPORT INFORMATION
  Report Type: Spontaneous
  Country: US (occurrence: None)
  Receive Date: 20131206
  Receipt Date: 20131206
  Transmission Date: 20140711
  Serious: Yes (Other)
  Sender: FDA-Public Use
  Company Number: 2013-PEL-000009

PATIENT
  Age: 3 Year
  Sex: Male
  Weight: 13 kg

DRUGS (3)
  1. SEVOFLURANE [Suspect]
     Indication: INDUCTION OF ANAESTHESIA
  2. ACETAMINOPHEN (PARACETAMOL) [Concomitant]
  3. FENTANYL (FENTANYL) [Concomitant]

REACTIONS (2)
  - Anaesthetic complication neurological [None]
  - Delirium [None]
